FAERS Safety Report 14757906 (Version 1)
Quarter: 2018Q2

REPORT INFORMATION
  Report Type: Spontaneous
  Country: US (occurrence: US)
  Receive Date: 20180409
  Receipt Date: 20180409
  Transmission Date: 20180711
  Serious: No
  Sender: FDA-Public Use
  Company Number: None

PATIENT
  Age: 52 Year
  Sex: Female

DRUGS (1)
  1. LETROZOLE TAB 2.5MG [Suspect]
     Active Substance: LETROZOLE

REACTIONS (2)
  - Blood urine present [None]
  - Urinary tract infection [None]

NARRATIVE: CASE EVENT DATE: 20180409
